FAERS Safety Report 18555036 (Version 20)
Quarter: 2025Q3

REPORT INFORMATION
  Report Type: Report from Study
  Country: US (occurrence: US)
  Receive Date: 20201127
  Receipt Date: 20250703
  Transmission Date: 20251021
  Serious: Yes (Death, Hospitalization, Other)
  Sender: TAKEDA
  Company Number: US-TAKEDA-2020TUS051644

PATIENT
  Age: 80 Year
  Sex: Female
  Weight: 44.89 kg

DRUGS (45)
  1. HUMAN IMMUNOGLOBULIN G [Suspect]
     Active Substance: HUMAN IMMUNOGLOBULIN G
     Indication: Immunodeficiency common variable
     Dosage: 20 GRAM, Q4WEEKS
  2. HUMAN IMMUNOGLOBULIN G [Suspect]
     Active Substance: HUMAN IMMUNOGLOBULIN G
     Dosage: UNK UNK, Q4WEEKS
  3. HUMAN IMMUNOGLOBULIN G [Suspect]
     Active Substance: HUMAN IMMUNOGLOBULIN G
     Dosage: 17 GRAM, Q4WEEKS
  4. HUMAN IMMUNOGLOBULIN G [Suspect]
     Active Substance: HUMAN IMMUNOGLOBULIN G
     Dosage: 400 MILLIGRAM/KILOGRAM, Q4WEEKS
  5. HUMAN IMMUNOGLOBULIN G [Suspect]
     Active Substance: HUMAN IMMUNOGLOBULIN G
     Dosage: 20 GRAM, Q4WEEKS
     Dates: end: 20250513
  6. ACETAMINOPHEN [Concomitant]
     Active Substance: ACETAMINOPHEN
  7. EPINEPHRINE [Concomitant]
     Active Substance: EPINEPHRINE
  8. OXYBUTYNIN CHLORIDE [Concomitant]
     Active Substance: OXYBUTYNIN CHLORIDE
  9. TYLENOL EXTRA STRENGTH [Concomitant]
     Active Substance: ACETAMINOPHEN
  10. CITALOPRAM HYDROBROMIDE [Concomitant]
     Active Substance: CITALOPRAM HYDROBROMIDE
  11. DILTIAZEM [Concomitant]
     Active Substance: DILTIAZEM
  12. BROVANA [Concomitant]
     Active Substance: ARFORMOTEROL TARTRATE
  13. SODIUM CHLORIDE [Concomitant]
     Active Substance: SODIUM CHLORIDE
  14. ALBUTEROL SULFATE [Concomitant]
     Active Substance: ALBUTEROL SULFATE
  15. ALEVE [Concomitant]
     Active Substance: NAPROXEN SODIUM
  16. ERYTHROMYCIN [Concomitant]
     Active Substance: ERYTHROMYCIN
  17. PANTOPRAZOLE SODIUM [Concomitant]
     Active Substance: PANTOPRAZOLE SODIUM
  18. FLUBLOK [Concomitant]
     Active Substance: INFLUENZA VIRUS VACCINE
  19. CYANOCOBALAMIN [Concomitant]
     Active Substance: CYANOCOBALAMIN
  20. VITAMIN B [Concomitant]
     Active Substance: VITAMIN B
  21. OXYGEN [Concomitant]
     Active Substance: OXYGEN
  22. VITAMIN D3 [Concomitant]
     Active Substance: CHOLECALCIFEROL
  23. SIMVASTATIN [Concomitant]
     Active Substance: SIMVASTATIN
  24. LEVOTHYROXINE [Concomitant]
     Active Substance: LEVOTHYROXINE
  25. DIPHENHYDRAMINE HYDROCHLORIDE [Concomitant]
     Active Substance: DIPHENHYDRAMINE HYDROCHLORIDE
  26. LEVOTHYROXINE SODIUM [Concomitant]
     Active Substance: LEVOTHYROXINE SODIUM
  27. BUDESONIDE [Concomitant]
     Active Substance: BUDESONIDE
  28. ISOSORBIDE MONONITRATE [Concomitant]
     Active Substance: ISOSORBIDE MONONITRATE
  29. ZETIA [Concomitant]
     Active Substance: EZETIMIBE
  30. DIPHENHYDRAMINE [Concomitant]
     Active Substance: DIPHENHYDRAMINE
  31. METOPROLOL SUCCINATE [Concomitant]
     Active Substance: METOPROLOL SUCCINATE
  32. CLOPIDOGREL [Concomitant]
     Active Substance: CLOPIDOGREL BISULFATE
  33. PROAIR HFA [Concomitant]
     Active Substance: ALBUTEROL SULFATE
  34. TOPROL XL [Concomitant]
     Active Substance: METOPROLOL SUCCINATE
  35. COZAAR [Concomitant]
     Active Substance: LOSARTAN POTASSIUM
  36. ALBUTEROL SULFATE [Concomitant]
     Active Substance: ALBUTEROL SULFATE
  37. Proair Bronquial [Concomitant]
  38. INFLUENZA VIRUS VACCINE [Concomitant]
     Active Substance: INFLUENZA VIRUS VACCINE
  39. TYLENOL [Concomitant]
     Active Substance: ACETAMINOPHEN
  40. ROFLUMILAST [Concomitant]
     Active Substance: ROFLUMILAST
  41. SPIRIVA [Concomitant]
     Active Substance: TIOTROPIUM BROMIDE MONOHYDRATE
  42. VITAMIN B12 [Concomitant]
     Active Substance: CYANOCOBALAMIN
  43. FOLIC ACID [Concomitant]
     Active Substance: FOLIC ACID
  44. FLUBLOK QUADRIVALENT NOS [Concomitant]
     Active Substance: INFLUENZA VIRUS VACCINE
  45. SYNTHROID [Concomitant]
     Active Substance: LEVOTHYROXINE SODIUM

REACTIONS (25)
  - Death [Fatal]
  - Fall [Unknown]
  - Hip fracture [Unknown]
  - Dyspepsia [Unknown]
  - Infusion related reaction [Unknown]
  - Chronic obstructive pulmonary disease [Unknown]
  - Head injury [Unknown]
  - Limb injury [Unknown]
  - Body height decreased [Unknown]
  - Poor venous access [Unknown]
  - Eye disorder [Unknown]
  - Throat irritation [Unknown]
  - Odynophagia [Unknown]
  - Weight decreased [Unknown]
  - Fluid intake reduced [Unknown]
  - Feeding disorder [Unknown]
  - Illness [Unknown]
  - Energy increased [Unknown]
  - Accident [Unknown]
  - Confusional state [Unknown]
  - Eating disorder [Unknown]
  - Contusion [Unknown]
  - Anaemia [Unknown]
  - Arthralgia [Unknown]
  - Headache [Unknown]

NARRATIVE: CASE EVENT DATE: 20211023
